FAERS Safety Report 8339400-6 (Version None)
Quarter: 2012Q2

REPORT INFORMATION
  Report Type: 
  Country: None (occurrence: None)
  Receive Date: 20120507
  Receipt Date: 20120501
  Transmission Date: 20120825
  Serious: Yes (Hospitalization)
  Sender: FDA-Public Use
  Company Number: US-B.I. PHARMACEUTICALS,INC./RIDGEFIELD-2011-BP-20754BP

PATIENT
  Age: 77 Year
  Sex: Female

DRUGS (11)
  1. PREDNISONE TAB [Concomitant]
     Indication: ASTHMA
     Dosage: 5 MG
     Route: 048
     Dates: start: 20120101
  2. SPIRIVA [Suspect]
     Indication: CHRONIC OBSTRUCTIVE PULMONARY DISEASE
     Dosage: 18 MCG
     Route: 055
     Dates: start: 20110501
  3. ALKA SELTZER [Suspect]
     Dates: start: 20111101
  4. ALBUTEROL [Concomitant]
     Indication: CHRONIC OBSTRUCTIVE PULMONARY DISEASE
     Route: 055
  5. NORVASC [Concomitant]
     Indication: HYPERTENSION
     Route: 048
  6. ALBUTEROL [Concomitant]
     Indication: ASTHMA
  7. SYMBICORT [Concomitant]
     Indication: ASTHMA
  8. SPIRIVA [Suspect]
     Indication: ASTHMA
  9. ALLEGRA [Concomitant]
     Indication: SEASONAL ALLERGY
     Dosage: 25 MG
     Route: 048
  10. SINGULAIR [Concomitant]
     Indication: SEASONAL ALLERGY
     Dosage: 10 MG
     Route: 048
  11. SYMBICORT [Concomitant]
     Indication: CHRONIC OBSTRUCTIVE PULMONARY DISEASE
     Route: 055

REACTIONS (2)
  - ASTHMA [None]
  - MUSCULOSKELETAL PAIN [None]
